FAERS Safety Report 7690716-6 (Version None)
Quarter: 2011Q3

REPORT INFORMATION
  Report Type: 
  Country: None (occurrence: None)
  Receive Date: 20110818
  Receipt Date: 20110812
  Transmission Date: 20111222
  Serious: Yes (Hospitalization)
  Sender: FDA-Public Use
  Company Number: JP-SANOFI-AVENTIS-2011SA050653

PATIENT

DRUGS (5)
  1. PACLITAXEL [Suspect]
     Dosage: DAY 1, 8 AND 15 EVERY 4 WEEKS
     Route: 065
  2. TS-1 [Concomitant]
  3. CISPLATIN [Concomitant]
  4. DOCETAXEL [Suspect]
     Indication: GASTRIC CANCER
     Route: 065
  5. DOCETAXEL [Suspect]
     Route: 065

REACTIONS (4)
  - DECREASED APPETITE [None]
  - FEBRILE NEUTROPENIA [None]
  - HYPERKALAEMIA [None]
  - NEUTROPENIA [None]
